FAERS Safety Report 24444264 (Version 2)
Quarter: 2024Q4

REPORT INFORMATION
  Report Type: Report from Study
  Country: DE (occurrence: DE)
  Receive Date: 20241016
  Receipt Date: 20241017
  Transmission Date: 20250114
  Serious: No
  Sender: ROCHE
  Company Number: DE-ROCHE-2711760

PATIENT
  Age: 48 Year
  Sex: Female

DRUGS (7)
  1. MABTHERA [Suspect]
     Active Substance: RITUXIMAB
     Indication: Secondary progressive multiple sclerosis
     Route: 042
     Dates: start: 20201104
  2. MABTHERA [Suspect]
     Active Substance: RITUXIMAB
     Route: 042
  3. OCREVUS [Suspect]
     Active Substance: OCRELIZUMAB
     Indication: Secondary progressive multiple sclerosis
     Route: 042
     Dates: start: 20220601
  4. OXCARBAZEPINE [Concomitant]
     Active Substance: OXCARBAZEPINE
  5. RIFAMPIN [Concomitant]
     Active Substance: RIFAMPIN
  6. TIZANIDINE [Concomitant]
     Active Substance: TIZANIDINE
  7. CITALOPRAM [Concomitant]
     Active Substance: CITALOPRAM

REACTIONS (11)
  - Off label use [Unknown]
  - Body temperature increased [Recovered/Resolved]
  - Gait disturbance [Recovered/Resolved]
  - Dental caries [Recovered/Resolved]
  - Trigeminal neuralgia [Unknown]
  - Off label use [Unknown]
  - Tremor [Not Recovered/Not Resolved]
  - Fatigue [Not Recovered/Not Resolved]
  - Balance disorder [Not Recovered/Not Resolved]
  - Musculoskeletal pain [Recovered/Resolved]
  - Fall [Unknown]

NARRATIVE: CASE EVENT DATE: 20201104
